FAERS Safety Report 19003966 (Version 1)
Quarter: 2021Q1

REPORT INFORMATION
  Report Type: Spontaneous
  Country: AU (occurrence: AU)
  Receive Date: 20210313
  Receipt Date: 20210313
  Transmission Date: 20210420
  Serious: Yes (Other)
  Sender: FDA-Public Use
  Company Number: AU-JNJFOC-20210322356

PATIENT
  Age: 74 Year
  Sex: Female

DRUGS (4)
  1. DOXEPIN [Suspect]
     Active Substance: DOXEPIN
     Indication: PAIN
     Dosage: UNK
     Route: 065
  2. ZIPRASIDONE. [Suspect]
     Active Substance: ZIPRASIDONE
     Indication: SCHIZOPHRENIA
     Dosage: UNK
     Route: 065
  3. DOXEPIN [Suspect]
     Active Substance: DOXEPIN
     Indication: SLEEP DISORDER
  4. TRAMADOL HYDROCHLORIDE. [Suspect]
     Active Substance: TRAMADOL HYDROCHLORIDE
     Indication: PRODUCT USED FOR UNKNOWN INDICATION
     Dosage: UNK
     Route: 065

REACTIONS (16)
  - Electrocardiogram QT prolonged [Unknown]
  - Electrocardiogram ST segment elevation [Unknown]
  - Pulmonary valve incompetence [Unknown]
  - Tricuspid valve incompetence [Unknown]
  - Mitral valve incompetence [Unknown]
  - Oedema peripheral [Unknown]
  - Dilatation ventricular [Unknown]
  - Diastolic dysfunction [Unknown]
  - Electrocardiogram QRS complex abnormal [Unknown]
  - Sciatica [Unknown]
  - Aortic arteriosclerosis [Unknown]
  - Suicidal ideation [Unknown]
  - Aortic valve sclerosis [Unknown]
  - Left ventricular hypertrophy [Unknown]
  - Mitral valve calcification [Unknown]
  - QRS axis abnormal [Unknown]

NARRATIVE: CASE EVENT DATE: 20200310
